FAERS Safety Report 15204046 (Version 1)
Quarter: 2018Q3

REPORT INFORMATION
  Report Type: Spontaneous
  Country: US (occurrence: US)
  Receive Date: 20180628
  Receipt Date: 20180628
  Transmission Date: 20181010
  Serious: Yes (Disabling)
  Sender: FDA-Public Use
  Company Number: None

PATIENT
  Age: 65 Year
  Sex: Female
  Weight: 74.25 kg

DRUGS (9)
  1. VITAMIN B [Concomitant]
     Active Substance: VITAMIN B
  2. VITAMIN D [Concomitant]
     Active Substance: CHOLECALCIFEROL
  3. FLUTICASONE PROPRIONATE [Suspect]
     Active Substance: FLUTICASONE PROPIONATE
     Indication: MULTIPLE ALLERGIES
     Dosage: ?          QUANTITY:1 SPRAY(S);?
     Route: 055
     Dates: start: 20111228, end: 20170318
  4. BENAZOFRIL [Concomitant]
  5. VITAMIN K [Concomitant]
     Active Substance: PHYTONADIONE
  6. METFORMIN [Concomitant]
     Active Substance: METFORMIN HYDROCHLORIDE
  7. SYMBICORT [Concomitant]
     Active Substance: BUDESONIDE\FORMOTEROL FUMARATE DIHYDRATE
  8. SIMVASTATIN. [Concomitant]
     Active Substance: SIMVASTATIN
  9. VITAMIN C [Concomitant]
     Active Substance: ASCORBIC ACID

REACTIONS (4)
  - Product use issue [None]
  - Nasal discomfort [None]
  - Chest pain [None]
  - Dyspnoea [None]

NARRATIVE: CASE EVENT DATE: 20171228
